FAERS Safety Report 8489421-8 (Version None)
Quarter: 2012Q2

REPORT INFORMATION
  Report Type: 
  Country: None (occurrence: None)
  Receive Date: 20120628
  Receipt Date: 20120628
  Transmission Date: 20120825
  Serious: Yes (Hospitalization)
  Sender: FDA-Public Use
  Company Number: None

PATIENT

DRUGS (1)
  1. SAVELLA [Suspect]
     Indication: FIBROMYALGIA
     Dosage: 100 MG QD PO
     Route: 048
     Dates: start: 20120501, end: 20120625

REACTIONS (4)
  - DIARRHOEA [None]
  - DEHYDRATION [None]
  - ABDOMINAL PAIN [None]
  - FIBROMYALGIA [None]
